FAERS Safety Report 5547327-8 (Version None)
Quarter: 2007Q4

REPORT INFORMATION
  Report Type: 
  Country: None (occurrence: None)
  Receive Date: 20071128
  Receipt Date: 20061116
  Transmission Date: 20080405
  Serious: Yes (Other)
  Sender: FDA-Public Use
  Company Number: 2006142708

PATIENT
  Sex: Male
  Weight: 78.0187 kg

DRUGS (3)
  1. LIPITOR [Suspect]
     Indication: BLOOD CHOLESTEROL INCREASED
     Dosage: 80 MG (80 MG, 1 IN 1 D), ORAL
     Route: 047
     Dates: start: 20060501
  2. ALTACE [Concomitant]
  3. TOPROL-XL [Concomitant]

REACTIONS (1)
  - DEAFNESS [None]
